FAERS Safety Report 18598234 (Version 2)
Quarter: 2020Q4

REPORT INFORMATION
  Report Type: Other
  Country: US (occurrence: US)
  Receive Date: 20201210
  Receipt Date: 20201221
  Transmission Date: 20210114
  Serious: Yes (Other)
  Sender: FDA-Public Use
  Company Number: US-ROCHE-2726120

PATIENT
  Sex: Female
  Weight: 63.56 kg

DRUGS (16)
  1. ACTEMRA [Suspect]
     Active Substance: TOCILIZUMAB
     Indication: IRIDOCYCLITIS
  2. ACTEMRA [Suspect]
     Active Substance: TOCILIZUMAB
  3. ACTEMRA [Suspect]
     Active Substance: TOCILIZUMAB
  4. ACTEMRA [Suspect]
     Active Substance: TOCILIZUMAB
     Indication: MACULAR DEGENERATION
  5. ACTEMRA [Suspect]
     Active Substance: TOCILIZUMAB
     Indication: IRIDOCYCLITIS
  6. ACTEMRA [Suspect]
     Active Substance: TOCILIZUMAB
  7. ACTEMRA [Suspect]
     Active Substance: TOCILIZUMAB
  8. ACTEMRA [Suspect]
     Active Substance: TOCILIZUMAB
     Indication: SARS-COV-2 TEST POSITIVE
     Route: 058
  9. ACTEMRA [Suspect]
     Active Substance: TOCILIZUMAB
  10. ACTEMRA [Suspect]
     Active Substance: TOCILIZUMAB
     Indication: IRIDOCYCLITIS
  11. ACTEMRA [Suspect]
     Active Substance: TOCILIZUMAB
  12. ACTEMRA [Suspect]
     Active Substance: TOCILIZUMAB
  13. ACTEMRA [Suspect]
     Active Substance: TOCILIZUMAB
     Indication: SARS-COV-2 TEST POSITIVE
     Route: 058
  14. ACTEMRA [Suspect]
     Active Substance: TOCILIZUMAB
     Indication: MACULAR DEGENERATION
  15. ACTEMRA [Suspect]
     Active Substance: TOCILIZUMAB
     Indication: IRIDOCYCLITIS
  16. ACTEMRA [Suspect]
     Active Substance: TOCILIZUMAB

REACTIONS (5)
  - Intentional product use issue [Unknown]
  - Fall [Unknown]
  - Contusion [Unknown]
  - Off label use [Unknown]
  - Seizure [Unknown]
